FAERS Safety Report 5887698-6 (Version None)
Quarter: 2008Q3

REPORT INFORMATION
  Report Type: 
  Country: None (occurrence: None)
  Receive Date: 20080916
  Receipt Date: 20080916
  Transmission Date: 20090109
  Serious: Yes (Life-Threatening, Hospitalization)
  Sender: FDA-Public Use
  Company Number: None

PATIENT
  Age: 63 Year
  Sex: Male
  Weight: 66 kg

DRUGS (7)
  1. ERBITUX [Suspect]
     Indication: LUNG NEOPLASM MALIGNANT
     Dosage: 100MG TEST CLOSE OTO IV
     Route: 042
     Dates: start: 20080512
  2. DIGOXIN [Concomitant]
  3. COREG [Concomitant]
  4. AMIODARONE HCL [Concomitant]
  5. COUMADIN [Concomitant]
  6. ASPIRIN [Concomitant]
  7. DEMECLOCYCLINE HCL [Concomitant]

REACTIONS (2)
  - ANAPHYLACTIC SHOCK [None]
  - CARDIO-RESPIRATORY ARREST [None]
